FAERS Safety Report 15821394 (Version 3)
Quarter: 2019Q1

REPORT INFORMATION
  Report Type: Spontaneous
  Country: GR (occurrence: GR)
  Receive Date: 20190114
  Receipt Date: 20190304
  Transmission Date: 20190417
  Serious: Yes (Hospitalization)
  Sender: FDA-Public Use
  Company Number: GR-MYLANLABS-2019M1001837

PATIENT
  Age: 34 Year
  Sex: Female

DRUGS (6)
  1. BETADINE [Suspect]
     Active Substance: POVIDONE-IODINE
     Indication: PRODUCT USED FOR UNKNOWN INDICATION
     Dosage: UNK
     Route: 067
  2. CEFUROXIME. [Suspect]
     Active Substance: CEFUROXIME
     Indication: ENTEROBACTER INFECTION
     Dosage: 2250 MILLIGRAM, QD (750 MG, TID)
     Route: 065
  3. AMOXICILLIN. [Suspect]
     Active Substance: AMOXICILLIN
     Indication: PRODUCT USED FOR UNKNOWN INDICATION
     Dosage: UNK, Q8H, EIGHT HOURLY FOR 10 DAYS
     Route: 065
  4. METRONIDAZOLE. [Suspect]
     Active Substance: METRONIDAZOLE
     Indication: PRODUCT USED FOR UNKNOWN INDICATION
     Dosage: UNK UNK, Q8H, EIGHT HOURLY FOR 10 DAYS
     Route: 065
  5. BETAMETHASONE. [Suspect]
     Active Substance: BETAMETHASONE
     Indication: PRODUCT USED FOR UNKNOWN INDICATION
     Dosage: 12 MILLIGRAM (12 MG IM WITH A REPEATED DOSE AT 24 H)
     Route: 030
  6. THYROXINE [Suspect]
     Active Substance: LEVOTHYROXINE
     Indication: HYPERTHYROIDISM
     Dosage: 350 MICROGRAM, QD (175 UG, BID)

REACTIONS (5)
  - Exposure during pregnancy [Recovered/Resolved]
  - Premature rupture of membranes [Unknown]
  - Twin pregnancy [Unknown]
  - Live birth [Recovered/Resolved]
  - Delayed delivery [Recovered/Resolved]
